FAERS Safety Report 22831270 (Version 4)
Quarter: 2023Q4

REPORT INFORMATION
  Report Type: Report from Study
  Country: US (occurrence: US)
  Receive Date: 20230817
  Receipt Date: 20231220
  Transmission Date: 20240110
  Serious: No
  Sender: FDA-Public Use
  Company Number: US-002147023-NVSC2023US178345

PATIENT
  Age: 40 Year
  Sex: Female

DRUGS (1)
  1. KESIMPTA [Suspect]
     Active Substance: OFATUMUMAB
     Indication: Multiple sclerosis
     Dosage: 20 MG, QW
     Route: 058
     Dates: start: 20230812

REACTIONS (7)
  - Fatigue [Unknown]
  - Influenza like illness [Unknown]
  - Muscle spasms [Unknown]
  - Abdominal discomfort [Unknown]
  - Pain in extremity [Unknown]
  - Tremor [Unknown]
  - Injection site bruising [Recovered/Resolved with Sequelae]

NARRATIVE: CASE EVENT DATE: 20230813
